FAERS Safety Report 5166259-0 (Version None)
Quarter: 2006Q4

REPORT INFORMATION
  Report Type: 
  Country: None (occurrence: None)
  Receive Date: 20060830
  Receipt Date: 20060509
  Transmission Date: 20070319
  Serious: No
  Sender: FDA-Public Use
  Company Number: 221868

PATIENT
  Age: 39 Year
  Sex: Female
  Weight: 58.9676 kg

DRUGS (1)
  1. XOLAIR [Suspect]
     Indication: ASTHMA
     Dosage: 375 MG Q2W SUBCUTANEOUS
     Route: 058
     Dates: start: 20050601, end: 20060207

REACTIONS (1)
  - LYMPHADENOPATHY [None]
